FAERS Safety Report 24660042 (Version 1)
Quarter: 2024Q4

REPORT INFORMATION
  Report Type: Spontaneous
  Country: CH (occurrence: CH)
  Receive Date: 20241125
  Receipt Date: 20241125
  Transmission Date: 20250114
  Serious: Yes (Hospitalization, Other)
  Sender: OTSUKA
  Company Number: CH-OTSUKA-2022_051459

PATIENT
  Sex: Male

DRUGS (12)
  1. ABILIFY [Suspect]
     Active Substance: ARIPIPRAZOLE
     Indication: Dementia
     Dosage: 5 ML, QD
     Route: 048
  2. ABILIFY [Suspect]
     Active Substance: ARIPIPRAZOLE
     Indication: Psychotic symptom
     Dosage: 7.5 ML
     Route: 048
     Dates: start: 202403
  3. ABILIFY [Suspect]
     Active Substance: ARIPIPRAZOLE
     Indication: Agitation
  4. RISPERIDONE [Suspect]
     Active Substance: RISPERIDONE
     Indication: Dementia
     Dosage: UNK
     Route: 065
  5. RISPERIDONE [Suspect]
     Active Substance: RISPERIDONE
     Indication: Agitation
  6. RISPERIDONE [Suspect]
     Active Substance: RISPERIDONE
     Indication: Hallucination
  7. HALDOL [Suspect]
     Active Substance: HALOPERIDOL
     Indication: Agitation
     Dosage: UNK
     Route: 065
     Dates: start: 202212
  8. QUETIAPINE [Suspect]
     Active Substance: QUETIAPINE
     Indication: Agitation
     Dosage: UNK
     Route: 065
  9. TRAZODONE [Suspect]
     Active Substance: TRAZODONE HYDROCHLORIDE
     Indication: Stereotypy
     Dosage: UNK
     Route: 065
     Dates: start: 202301
  10. TRAZODONE [Suspect]
     Active Substance: TRAZODONE HYDROCHLORIDE
     Indication: Anxiety
  11. BACLOFEN [Suspect]
     Active Substance: BACLOFEN
     Indication: Muscle spasticity
     Dosage: UNK
     Route: 065
  12. FENTANYL [Suspect]
     Active Substance: FENTANYL
     Indication: Pain
     Dosage: UNK
     Route: 065

REACTIONS (11)
  - Dementia [Unknown]
  - Confusional state [Unknown]
  - Hallucination [Recovered/Resolved]
  - Respiratory syncytial virus infection [Unknown]
  - Stereotypy [Unknown]
  - Persecutory delusion [Recovered/Resolved]
  - Muscle spasticity [Unknown]
  - Pain [Unknown]
  - Agitation [Recovering/Resolving]
  - Anxiety [Unknown]
  - Product use in unapproved indication [Unknown]

NARRATIVE: CASE EVENT DATE: 20240301
